FAERS Safety Report 24449018 (Version 1)
Quarter: 2024Q4

REPORT INFORMATION
  Report Type: Spontaneous
  Country: SE (occurrence: SE)
  Receive Date: 20241017
  Receipt Date: 20241017
  Transmission Date: 20250115
  Serious: Yes (Other)
  Sender: CELLTRION
  Company Number: None

PATIENT

DRUGS (3)
  1. RITUXIMAB [Suspect]
     Active Substance: RITUXIMAB
     Indication: Waldenstrom^s macroglobulinaemia
     Dosage: UNK
     Dates: start: 20240214, end: 20240214
  2. RITUXIMAB [Suspect]
     Active Substance: RITUXIMAB
     Dosage: 1000 MG, 1 TOTAL
     Route: 042
     Dates: start: 20240312, end: 20240312
  3. CITALOPRAM [Concomitant]
     Active Substance: CITALOPRAM

REACTIONS (6)
  - Pruritus allergic [Recovered/Resolved]
  - Vomiting [Recovered/Resolved]
  - Taste disorder [Unknown]
  - Nausea [Recovered/Resolved]
  - Constipation [Recovered/Resolved]
  - Intentional product use issue [Unknown]

NARRATIVE: CASE EVENT DATE: 20240217
